FAERS Safety Report 10094503 (Version 1)
Quarter: 2014Q2

REPORT INFORMATION
  Report Type: Spontaneous
  Country: FR (occurrence: None)
  Receive Date: 20140418
  Receipt Date: 20140418
  Transmission Date: 20141212
  Serious: Yes (Other)
  Sender: FDA-Public Use
  Company Number: FR-015267

PATIENT
  Age: 46 Year
  Sex: Female

DRUGS (1)
  1. PICOPREP [Suspect]
     Indication: COLONOSCOPY
     Route: 048
     Dates: start: 20140324, end: 20140324

REACTIONS (1)
  - Enteritis [None]
